FAERS Safety Report 20049885 (Version 1)
Quarter: 2021Q4

REPORT INFORMATION
  Report Type: Spontaneous
  Country: FI (occurrence: FI)
  Receive Date: 20211109
  Receipt Date: 20211109
  Transmission Date: 20220303
  Serious: Yes (Other)
  Sender: FDA-Public Use
  Company Number: FI-AMGEN-FINSP2021171578

PATIENT
  Age: 49 Year
  Sex: Male

DRUGS (9)
  1. XGEVA [Suspect]
     Active Substance: DENOSUMAB
     Indication: Metastases to bone
     Dosage: UNK
     Route: 065
  2. XGEVA [Suspect]
     Active Substance: DENOSUMAB
     Indication: Hormone-refractory prostate cancer
  3. CYPROTERONE [Concomitant]
     Active Substance: CYPROTERONE
  4. DEGARELIX [Concomitant]
     Active Substance: DEGARELIX
  5. BICALUTAMIDE [Concomitant]
     Active Substance: BICALUTAMIDE
  6. ZOLEDRONIC ACID [Concomitant]
     Active Substance: ZOLEDRONIC ACID
  7. DOCETAXEL [Concomitant]
     Active Substance: DOCETAXEL
  8. MITOXANTRONE [Concomitant]
     Active Substance: MITOXANTRONE HYDROCHLORIDE
  9. ABIRATERONE [Concomitant]
     Active Substance: ABIRATERONE

REACTIONS (1)
  - Prostate cancer metastatic [Unknown]
